FAERS Safety Report 8442883-4 (Version None)
Quarter: 2012Q2

REPORT INFORMATION
  Report Type: 
  Country: None (occurrence: None)
  Receive Date: 20120615
  Receipt Date: 20120604
  Transmission Date: 20120825
  Serious: No
  Sender: FDA-Public Use
  Company Number: US-ASTRAZENECA-2012SE37103

PATIENT
  Age: 74 Year
  Sex: Female
  Weight: 56.7 kg

DRUGS (6)
  1. NEXIUM [Suspect]
     Indication: EROSIVE OESOPHAGITIS
     Route: 048
     Dates: start: 20120101
  2. ZOCOR [Concomitant]
  3. NEXIUM [Suspect]
     Indication: HIATUS HERNIA
     Route: 048
     Dates: start: 20120101
  4. SIMVASTATIN [Concomitant]
  5. FISH OIL [Concomitant]
  6. CRITICAL PLUS C [Concomitant]

REACTIONS (2)
  - OFF LABEL USE [None]
  - CONSTIPATION [None]
